FAERS Safety Report 7568126-1 (Version None)
Quarter: 2011Q2

REPORT INFORMATION
  Report Type: 
  Country: None (occurrence: None)
  Receive Date: 20110616
  Receipt Date: 20110609
  Transmission Date: 20111010
  Serious: Yes (Hospitalization)
  Sender: FDA-Public Use
  Company Number: 2011SP026859

PATIENT
  Age: 35 Year
  Sex: Male

DRUGS (2)
  1. FLUOXETINE HCL [Concomitant]
  2. PEGATRON (PEGYLATED INTERFERON ALFA-2B W/RIBAVIRIN) [Suspect]
     Indication: HEPATITIS C
     Dates: start: 20100720

REACTIONS (9)
  - BLOOD COUNT ABNORMAL [None]
  - DIARRHOEA [None]
  - SKIN ULCER [None]
  - SKIN BURNING SENSATION [None]
  - MOUTH ULCERATION [None]
  - CHILLS [None]
  - ORAL HERPES [None]
  - NAUSEA [None]
  - PAIN IN EXTREMITY [None]
